FAERS Safety Report 25061855 (Version 1)
Quarter: 2025Q1

REPORT INFORMATION
  Report Type: Spontaneous
  Country: US (occurrence: US)
  Receive Date: 20250311
  Receipt Date: 20250311
  Transmission Date: 20250408
  Serious: Yes (Death)
  Sender: BLUEPRINT MEDICINES
  Company Number: US-Blueprint Medicines Corporation-2025-AER-00455

PATIENT
  Age: 48 Year
  Sex: Male

DRUGS (2)
  1. AYVAKIT [Suspect]
     Active Substance: AVAPRITINIB
     Indication: Pelvic mass
     Route: 065
     Dates: start: 20240906
  2. AYVAKIT [Suspect]
     Active Substance: AVAPRITINIB
     Indication: Abdominal mass

REACTIONS (2)
  - Death [Fatal]
  - Off label use [Unknown]
